FAERS Safety Report 4617813-3 (Version None)
Quarter: 2005Q1

REPORT INFORMATION
  Report Type: 
  Country: None (occurrence: None)
  Receive Date: 20050311
  Receipt Date: 20050228
  Transmission Date: 20050727
  Serious: Yes (Other)
  Sender: FDA-Public Use
  Company Number: HQWYE733501MAR05

PATIENT
  Age: 3 Year
  Sex: Male

DRUGS (7)
  1. BENEFIX (NONACOG ALFA, INJECTION) LOT NO.: LE0C042AD, LE7D011AB [Suspect]
     Indication: HAEMOPHILIA
     Dosage: UNSPECIFIED DOSE ON-DEMAND; FOR MODIFIED IMMUNE TOLERANCE THERAPY; 100 IU/KG 2X PER 1 WK
     Dates: start: 20020901, end: 20030501
  2. BENEFIX (NONACOG ALFA, INJECTION) LOT NO.: LE0C042AD, LE7D011AB [Suspect]
     Indication: PROPHYLAXIS
     Dosage: UNSPECIFIED DOSE ON-DEMAND; FOR MODIFIED IMMUNE TOLERANCE THERAPY; 100 IU/KG 2X PER 1 WK
     Dates: start: 20020901, end: 20030501
  3. BENEFIX (NONACOG ALFA, INJECTION) LOT NO.: LE0C042AD, LE7D011AB [Suspect]
     Indication: HAEMOPHILIA
     Dosage: UNSPECIFIED DOSE ON-DEMAND; FOR MODIFIED IMMUNE TOLERANCE THERAPY; 100 IU/KG 2X PER 1 WK
     Dates: start: 20040129, end: 20050207
  4. BENEFIX (NONACOG ALFA, INJECTION) LOT NO.: LE0C042AD, LE7D011AB [Suspect]
     Indication: PROPHYLAXIS
     Dosage: UNSPECIFIED DOSE ON-DEMAND; FOR MODIFIED IMMUNE TOLERANCE THERAPY; 100 IU/KG 2X PER 1 WK
     Dates: start: 20040129, end: 20050207
  5. BENEFIX (NONACOG ALFA, INJECTION) LOT NO.: LE0C042AD, LE7D011AB [Suspect]
     Indication: HAEMOPHILIA
     Dosage: UNSPECIFIED DOSE ON-DEMAND; FOR MODIFIED IMMUNE TOLERANCE THERAPY; 100 IU/KG 2X PER 1 WK
     Dates: start: 20050207
  6. BENEFIX (NONACOG ALFA, INJECTION) LOT NO.: LE0C042AD, LE7D011AB [Suspect]
     Indication: PROPHYLAXIS
     Dosage: UNSPECIFIED DOSE ON-DEMAND; FOR MODIFIED IMMUNE TOLERANCE THERAPY; 100 IU/KG 2X PER 1 WK
     Dates: start: 20050207
  7. BENEFIX (NONACOG ALFA, INJECTION) LOT NO.: LE0C042AD, LE7D011AB [Suspect]

REACTIONS (5)
  - ANTI FACTOR IX ANTIBODY POSITIVE [None]
  - DRUG HYPERSENSITIVITY [None]
  - FEELING HOT [None]
  - FLUSHING [None]
  - VOMITING [None]
